FAERS Safety Report 15547344 (Version 1)
Quarter: 2018Q4

REPORT INFORMATION
  Report Type: Spontaneous
  Country: US (occurrence: US)
  Receive Date: 20181024
  Receipt Date: 20181024
  Transmission Date: 20190205
  Serious: Yes (Hospitalization)
  Sender: FDA-Public Use
  Company Number: US-TEVA-2018-US-966569

PATIENT
  Age: 73 Year
  Sex: Male

DRUGS (2)
  1. OMEGA-3 FATTY ACID [Suspect]
     Active Substance: OMEGA-3 FATTY ACIDS
     Indication: MAJOR DEPRESSION
     Dosage: 10 TO 15 G/DAY
     Route: 065
  2. VITAMIN-D3 [Concomitant]
     Indication: NUTRITIONAL SUPPLEMENTATION
     Route: 065

REACTIONS (2)
  - Intentional product misuse [Unknown]
  - Mania [Recovered/Resolved]
